FAERS Safety Report 5803055-2 (Version None)
Quarter: 2008Q3

REPORT INFORMATION
  Report Type: 
  Country: None (occurrence: None)
  Receive Date: 20080708
  Receipt Date: 20080627
  Transmission Date: 20090109
  Serious: Yes (Hospitalization)
  Sender: FDA-Public Use
  Company Number: IT-JNJFOC-20080700959

PATIENT
  Sex: Female

DRUGS (9)
  1. TRAMADOL HCL [Suspect]
     Indication: ABDOMINAL PAIN
     Route: 048
     Dates: start: 20080609, end: 20080612
  2. NAPROXEN SODIUM [Suspect]
     Indication: ARTHRALGIA
     Route: 048
  3. CO-EFFERALGAN [Suspect]
     Indication: ABDOMINAL PAIN
     Route: 048
  4. TORADOL [Suspect]
     Indication: ARTHRALGIA
     Route: 030
  5. EPINITRIL [Concomitant]
  6. LANSOPRAZOLE [Concomitant]
  7. LASIX [Concomitant]
  8. VERECOLENE [Concomitant]
  9. HUMALOG [Concomitant]

REACTIONS (4)
  - ABDOMINAL PAIN [None]
  - DUODENAL ULCER [None]
  - GASTRIC ULCER [None]
  - MELAENA [None]
